FAERS Safety Report 19559811 (Version 1)
Quarter: 2021Q3

REPORT INFORMATION
  Report Type: Spontaneous
  Country: US (occurrence: US)
  Receive Date: 20210715
  Receipt Date: 20210715
  Transmission Date: 20211014
  Serious: Yes (Hospitalization)
  Sender: FDA-Public Use
  Company Number: None

PATIENT
  Age: 71 Year
  Sex: Female
  Weight: 38.1 kg

DRUGS (2)
  1. CISPLATIN 55MG IN NSS 1000ML BAG [Concomitant]
  2. PEMBROLIZUMAB 200 MG IN NSS 50 ML BAG [Suspect]
     Active Substance: PEMBROLIZUMAB

REACTIONS (2)
  - Therapy interrupted [None]
  - Neutrophil count decreased [None]

NARRATIVE: CASE EVENT DATE: 20210707
